FAERS Safety Report 13768240 (Version 3)
Quarter: 2020Q2

REPORT INFORMATION
  Report Type: Spontaneous
  Country: BR (occurrence: BR)
  Receive Date: 20170719
  Receipt Date: 20200518
  Transmission Date: 20200713
  Serious: Yes (Other)
  Sender: FDA-Public Use
  Company Number: BR-BRISTOL-MYERS SQUIBB COMPANY-BMS-2017-063294

PATIENT
  Sex: Female

DRUGS (1)
  1. ELIQUIS [Suspect]
     Active Substance: APIXABAN
     Indication: ARTERIAL OCCLUSIVE DISEASE
     Dosage: 2.5 MG, BID
     Route: 065
     Dates: start: 2016

REACTIONS (5)
  - Leg amputation [Unknown]
  - Headache [Not Recovered/Not Resolved]
  - Necrosis [Not Recovered/Not Resolved]
  - Dementia [Not Recovered/Not Resolved]
  - Intentional product use issue [Unknown]
